FAERS Safety Report 17371569 (Version 1)
Quarter: 2020Q1

REPORT INFORMATION
  Report Type: Spontaneous
  Country: US (occurrence: US)
  Receive Date: 20200205
  Receipt Date: 20200205
  Transmission Date: 20200409
  Serious: Yes (Hospitalization)
  Sender: FDA-Public Use
  Company Number: US-ASTRAZENECA-2020SE15138

PATIENT
  Sex: Female

DRUGS (3)
  1. BYDUREON [Suspect]
     Active Substance: EXENATIDE
     Route: 065
  2. VICTOZA [Concomitant]
     Active Substance: LIRAGLUTIDE
     Route: 065
  3. BYDUREON [Suspect]
     Active Substance: EXENATIDE
     Route: 065

REACTIONS (12)
  - Confusional state [Unknown]
  - Blood glucose decreased [Unknown]
  - Insurance issue [Unknown]
  - Injection site mass [Unknown]
  - Feeling abnormal [Unknown]
  - Vomiting [Unknown]
  - Dyspnoea [Unknown]
  - Rash [Unknown]
  - Malaise [Unknown]
  - Respiratory disorder [Unknown]
  - Hypophagia [Unknown]
  - Nausea [Unknown]
